FAERS Safety Report 21667370 (Version 2)
Quarter: 2023Q1

REPORT INFORMATION
  Report Type: Spontaneous
  Country: US (occurrence: US)
  Receive Date: 20221201
  Receipt Date: 20230202
  Transmission Date: 20230417
  Serious: No
  Sender: FDA-Public Use
  Company Number: US-BRISTOL-MYERS SQUIBB COMPANY-2022-145215

PATIENT
  Age: 60 Year
  Sex: Male

DRUGS (3)
  1. APIXABAN [Suspect]
     Active Substance: APIXABAN
     Indication: Cerebrovascular accident prophylaxis
     Dosage: ONE HOUR PRIOR TO DIALYSIS
  2. APIXABAN [Suspect]
     Active Substance: APIXABAN
     Indication: Thrombosis in device
  3. SALINE [Concomitant]
     Active Substance: SODIUM CHLORIDE
     Indication: Thrombosis in device
     Dosage: SALINE FLUSH HOURLY

REACTIONS (1)
  - Bleeding time prolonged [Unknown]
